FAERS Safety Report 4512958-0 (Version None)
Quarter: 2004Q4

REPORT INFORMATION
  Report Type: 
  Country: None (occurrence: None)
  Receive Date: 20041124
  Receipt Date: 20041112
  Transmission Date: 20050328
  Serious: Yes (Other)
  Sender: FDA-Public Use
  Company Number: 2004092420

PATIENT
  Sex: Female
  Weight: 63.5036 kg

DRUGS (7)
  1. ROGAINE [Suspect]
     Indication: HYPOTRICHOSIS
     Dosage: ^NOT A FULL AMOUNT^ ONCE, TOPICAL
     Route: 061
     Dates: start: 20030101, end: 20030101
  2. ASPIRIN [Concomitant]
  3. LEVOTHYROXINE SODIUM [Concomitant]
  4. DIGOXIN [Concomitant]
  5. ATORVASTATIN (ATORVASTATIN) [Concomitant]
  6. TOCOPHEROL CONCENTRATE CAP [Concomitant]
  7. CALCIUM (CALCIUM) [Concomitant]

REACTIONS (4)
  - AURICULAR SWELLING [None]
  - DRUG INEFFECTIVE [None]
  - EYE SWELLING [None]
  - SWELLING FACE [None]
